FAERS Safety Report 25330546 (Version 1)
Quarter: 2025Q2

REPORT INFORMATION
  Report Type: Spontaneous
  Country: US (occurrence: US)
  Receive Date: 20250519
  Receipt Date: 20250519
  Transmission Date: 20250716
  Serious: Yes (Other)
  Sender: BAUSCH AND LOMB
  Company Number: US-BAUSCH-BL-2025-006236

PATIENT
  Age: 8 Decade
  Sex: Male

DRUGS (11)
  1. ALBUTEROL [Suspect]
     Active Substance: ALBUTEROL
     Indication: Chronic obstructive pulmonary disease
     Route: 055
  2. ALBUTEROL\IPRATROPIUM [Concomitant]
     Active Substance: ALBUTEROL\IPRATROPIUM
     Indication: Chronic obstructive pulmonary disease
     Route: 055
  3. PANTOPRAZOLE [Concomitant]
     Active Substance: PANTOPRAZOLE
     Indication: Chronic obstructive pulmonary disease
  4. LOSARTAN [Concomitant]
     Active Substance: LOSARTAN
     Indication: Chronic obstructive pulmonary disease
  5. METOPROLOL [Concomitant]
     Active Substance: METOPROLOL
     Indication: Chronic obstructive pulmonary disease
  6. TORSEMIDE [Concomitant]
     Active Substance: TORSEMIDE
     Indication: Chronic obstructive pulmonary disease
  7. WARFARIN [Concomitant]
     Active Substance: WARFARIN
     Indication: Chronic obstructive pulmonary disease
  8. OXYGEN [Concomitant]
     Active Substance: OXYGEN
     Indication: Chronic obstructive pulmonary disease
     Route: 045
  9. OXYGEN [Concomitant]
     Active Substance: OXYGEN
     Indication: Oxygen therapy
  10. VANCOMYCIN [Concomitant]
     Active Substance: VANCOMYCIN
     Indication: Chronic obstructive pulmonary disease
  11. CEFEPIME [Concomitant]
     Active Substance: CEFEPIME HYDROCHLORIDE
     Indication: Chronic obstructive pulmonary disease

REACTIONS (1)
  - Lactic acidosis [Recovered/Resolved]
